FAERS Safety Report 6018416-9 (Version None)
Quarter: 2008Q4

REPORT INFORMATION
  Report Type: 
  Country: None (occurrence: None)
  Receive Date: 20081219
  Receipt Date: 20071220
  Transmission Date: 20090506
  Serious: Yes (Hospitalization)
  Sender: FDA-Public Use
  Company Number: US200712004290

PATIENT
  Sex: Male

DRUGS (2)
  1. HUMULIN 70/30 [Suspect]
     Dates: start: 19920101
  2. HUMULIN R [Suspect]
     Dosage: INTRAVENOUS
     Route: 042
     Dates: start: 19920101

REACTIONS (3)
  - BLOOD GLUCOSE INCREASED [None]
  - RHINORRHOEA [None]
  - SNEEZING [None]
